FAERS Safety Report 10396684 (Version 2)
Quarter: 2014Q3

REPORT INFORMATION
  Report Type: Spontaneous
  Country: US (occurrence: US)
  Receive Date: 20140820
  Receipt Date: 20140904
  Transmission Date: 20150326
  Serious: Yes (Other)
  Sender: FDA-Public Use
  Company Number: US-GLAXOSMITHKLINE-A1084875A

PATIENT
  Age: 77 Year
  Sex: Male

DRUGS (7)
  1. XTANDI [Concomitant]
     Active Substance: ENZALUTAMIDE
  2. UNKNOWN SUPPLEMENT [Concomitant]
     Active Substance: UNSPECIFIED INGREDIENT
  3. FIRMAGON [Concomitant]
     Active Substance: DEGARELIX ACETATE
  4. VOTRIENT [Suspect]
     Active Substance: PAZOPANIB HYDROCHLORIDE
     Indication: PROSTATE CANCER
     Dosage: 1TAB PER DAY
     Route: 048
     Dates: start: 201303
  5. SPRYCEL [Suspect]
     Active Substance: DASATINIB
     Indication: PROSTATE CANCER
     Dosage: 1TAB PER DAY
     Route: 048
     Dates: start: 201303, end: 201310
  6. AMLODIPINE BESYLATE. [Concomitant]
     Active Substance: AMLODIPINE BESYLATE
  7. VITAMIN SUPPLEMENT [Concomitant]
     Active Substance: VITAMINS

REACTIONS (4)
  - Prostatic specific antigen increased [Recovered/Resolved]
  - Fatigue [Recovered/Resolved]
  - Vomiting [Recovered/Resolved]
  - Loss of consciousness [Recovered/Resolved]

NARRATIVE: CASE EVENT DATE: 2013
